FAERS Safety Report 5096168-7 (Version None)
Quarter: 2006Q3

REPORT INFORMATION
  Report Type: 
  Country: None (occurrence: None)
  Receive Date: 20060905
  Receipt Date: 20060711
  Transmission Date: 20061208
  Serious: Yes (Life-Threatening, Hospitalization)
  Sender: FDA-Public Use
  Company Number: GB-ROCHE-454569

PATIENT
  Age: 46 Year
  Sex: Female

DRUGS (2)
  1. XELODA [Suspect]
     Indication: COLON CANCER
     Dosage: FROM DAYS ONE TO FOURTEEN OF A THREE WEEK CYCLE.
     Route: 065
  2. OXALIPLATIN [Concomitant]
     Indication: COLON CANCER
     Dosage: OXALIPLATIN DOSE WAS SUBSEQUENTLY REDUCED BY 25%.
     Route: 065

REACTIONS (8)
  - ANAEMIA [None]
  - COMA [None]
  - COORDINATION ABNORMAL [None]
  - LEUKOPENIA [None]
  - NEUROPATHY PERIPHERAL [None]
  - NEUROTOXICITY [None]
  - THROMBOCYTOPENIA [None]
  - URINARY TRACT INFECTION [None]
